FAERS Safety Report 15226860 (Version 1)
Quarter: 2018Q3

REPORT INFORMATION
  Report Type: Spontaneous
  Country: FR (occurrence: FR)
  Receive Date: 20180801
  Receipt Date: 20180801
  Transmission Date: 20181010
  Serious: Yes (Hospitalization)
  Sender: FDA-Public Use
  Company Number: PHHY2018FR053882

PATIENT
  Age: 52 Year
  Sex: Male

DRUGS (1)
  1. METHOTREXATE. [Suspect]
     Active Substance: METHOTREXATE
     Indication: PRODUCT USED FOR UNKNOWN INDICATION
     Dosage: 10 MG, QD (OVER 3 CONSECUTIVE DAYS)
     Route: 065

REACTIONS (7)
  - Dermatitis exfoliative generalised [Unknown]
  - Acute kidney injury [Unknown]
  - Skin dystrophy [Unknown]
  - Overdose [Unknown]
  - Skin toxicity [Unknown]
  - Pancytopenia [Unknown]
  - Hepatic failure [Unknown]
